FAERS Safety Report 18298553 (Version 1)
Quarter: 2020Q3

REPORT INFORMATION
  Report Type: Spontaneous
  Country: US (occurrence: US)
  Receive Date: 20200922
  Receipt Date: 20200922
  Transmission Date: 20201103
  Serious: Yes (Other)
  Sender: FDA-Public Use
  Company Number: NVSC2020US256380

PATIENT

DRUGS (3)
  1. ONALESPIB [Suspect]
     Active Substance: ONALESPIB
     Indication: NEOPLASM
     Dosage: 260 MG/M2, D1, 8, 15
     Route: 042
  2. DABRAFENIB [Suspect]
     Active Substance: DABRAFENIB
     Indication: NEOPLASM
     Dosage: 150 MG, BID
     Route: 048
  3. TRAMETINIB [Suspect]
     Active Substance: TRAMETINIB
     Indication: NEOPLASM
     Dosage: 2 MG, QD
     Route: 048

REACTIONS (2)
  - Fatigue [Unknown]
  - Product use issue [Unknown]
